FAERS Safety Report 7908596-X (Version None)
Quarter: 2011Q4

REPORT INFORMATION
  Report Type: 
  Country: None (occurrence: None)
  Receive Date: 20111111
  Receipt Date: 20111031
  Transmission Date: 20120403
  Serious: Yes (Hospitalization)
  Sender: FDA-Public Use
  Company Number: PHHY2011US38325

PATIENT
  Sex: Female

DRUGS (1)
  1. EXJADE [Suspect]
     Indication: ANAEMIA
     Dosage: 1000 MG, QD
     Route: 048

REACTIONS (8)
  - ABDOMINAL PAIN [None]
  - VISION BLURRED [None]
  - DECREASED APPETITE [None]
  - ABDOMINAL DISCOMFORT [None]
  - HEADACHE [None]
  - NAUSEA [None]
  - WOUND [None]
  - DIARRHOEA [None]
